FAERS Safety Report 15362985 (Version 3)
Quarter: 2020Q3

REPORT INFORMATION
  Report Type: Spontaneous
  Country: GB (occurrence: GB)
  Receive Date: 20180907
  Receipt Date: 20200818
  Transmission Date: 20201102
  Serious: Yes (Other)
  Sender: FDA-Public Use
  Company Number: GB-JNJFOC-20180900235

PATIENT

DRUGS (1)
  1. REMICADE [Suspect]
     Active Substance: INFLIXIMAB
     Indication: IMMUNE-MEDIATED ENTEROCOLITIS
     Route: 042

REACTIONS (4)
  - Off label use [Unknown]
  - Infection [Unknown]
  - Pneumocystis jirovecii pneumonia [Unknown]
  - Product use in unapproved indication [Unknown]
